FAERS Safety Report 6056057-8 (Version None)
Quarter: 2009Q1

REPORT INFORMATION
  Report Type: 
  Country: None (occurrence: None)
  Receive Date: 20090126
  Receipt Date: 20090115
  Transmission Date: 20090719
  Serious: Yes (Hospitalization)
  Sender: FDA-Public Use
  Company Number: 112689

PATIENT
  Age: 72 Year
  Sex: Female

DRUGS (13)
  1. ACETAMINOPHEN [Suspect]
     Indication: MIGRAINE
  2. ALENDRONIC ACID [Suspect]
     Indication: OSTEOARTHRITIS
  3. CALCICHEW [Concomitant]
  4. CARBAMAZEPINE [Concomitant]
  5. CODEINE PHOSPHATE [Concomitant]
  6. GAVISCON [Concomitant]
  7. PANTOPRAZOLE [Concomitant]
  8. RISEDRONATE SODIUM [Concomitant]
  9. SERETIDE [Concomitant]
  10. THYROXINE [Concomitant]
  11. VENTOLIN [Concomitant]
  12. WARFARIN [Concomitant]
  13. ZOLMITRIPTAN [Concomitant]

REACTIONS (3)
  - CEREBROVASCULAR ACCIDENT [None]
  - COUGH [None]
  - DYSPNOEA [None]
